FAERS Safety Report 15860333 (Version 9)
Quarter: 2022Q3

REPORT INFORMATION
  Report Type: Report from Study
  Country: US (occurrence: US)
  Receive Date: 20190123
  Receipt Date: 20220812
  Transmission Date: 20221026
  Serious: Yes (Hospitalization, Other)
  Sender: FDA-Public Use
  Company Number: US-NOVARTISPH-PHEH2019US003132

PATIENT
  Sex: Female

DRUGS (2)
  1. PROMACTA [Suspect]
     Active Substance: ELTROMBOPAG OLAMINE
     Indication: Immune thrombocytopenia
     Dosage: UNK
     Route: 065
  2. PROMACTA [Suspect]
     Active Substance: ELTROMBOPAG OLAMINE
     Dosage: 50 MG
     Route: 048
     Dates: start: 20210103

REACTIONS (6)
  - Pneumonia [Unknown]
  - Thrombocytopenia [Unknown]
  - Malaise [Unknown]
  - Illness [Unknown]
  - Platelet count decreased [Unknown]
  - Myalgia [Unknown]
